FAERS Safety Report 5285564-0 (Version None)
Quarter: 2007Q1

REPORT INFORMATION
  Report Type: 
  Country: None (occurrence: None)
  Receive Date: 20061229
  Receipt Date: 20060914
  Transmission Date: 20070707
  Serious: Yes (Other)
  Sender: FDA-Public Use
  Company Number: 2006UW18093

PATIENT
  Age: 46 Year
  Sex: Male
  Weight: 86.182 kg

DRUGS (2)
  1. CRESTOR [Suspect]
     Indication: HYPERCHOLESTEROLAEMIA
     Dosage: 5 MG QD PO
     Route: 048
     Dates: start: 20060911
  2. NEXIUM ORAL [Concomitant]

REACTIONS (2)
  - HEADACHE [None]
  - REFLUX OESOPHAGITIS [None]
